FAERS Safety Report 12402665 (Version 1)
Quarter: 2016Q2

REPORT INFORMATION
  Report Type: Spontaneous
  Country: US (occurrence: US)
  Receive Date: 20160525
  Receipt Date: 20160525
  Transmission Date: 20160815
  Serious: No
  Sender: FDA-Public Use
  Company Number: US-TEVA-611282USA

PATIENT
  Sex: Female
  Weight: 52.21 kg

DRUGS (1)
  1. CLOPIDOGREL [Suspect]
     Active Substance: CLOPIDOGREL BISULFATE
     Indication: AORTIC VALVE REPAIR
     Dates: start: 20150919

REACTIONS (4)
  - Fatigue [Unknown]
  - Pollakiuria [Unknown]
  - Confusional state [Unknown]
  - Asthenia [Unknown]
